FAERS Safety Report 5406005-6 (Version None)
Quarter: 2007Q3

REPORT INFORMATION
  Report Type: 
  Country: None (occurrence: None)
  Receive Date: 20070802
  Receipt Date: 20070802
  Transmission Date: 20080115
  Serious: Yes (Life-Threatening)
  Sender: FDA-Public Use
  Company Number: None

PATIENT
  Age: 46 Year
  Sex: Female
  Weight: 56.6996 kg

DRUGS (1)
  1. ELIDEL [Suspect]
     Indication: ECZEMA
     Dosage: VARIED VARIED- 2-3X/DAIL CUTANEOUS
     Route: 003
     Dates: start: 20020501, end: 20070707

REACTIONS (6)
  - B-CELL LYMPHOMA [None]
  - DYSPEPSIA [None]
  - EAR INFECTION [None]
  - FATIGUE [None]
  - PEPTIC ULCER [None]
  - RESPIRATORY TRACT INFECTION [None]
